FAERS Safety Report 9533401 (Version 1)
Quarter: 2013Q3

REPORT INFORMATION
  Report Type: Spontaneous
  Country: US (occurrence: US)
  Receive Date: 20130918
  Receipt Date: 20130918
  Transmission Date: 20140515
  Serious: No
  Sender: FDA-Public Use
  Company Number: US-PURDUE-USA-2011-0077713

PATIENT
  Sex: Male

DRUGS (3)
  1. BUTRANS [Suspect]
     Indication: PRODUCT USED FOR UNKNOWN INDICATION
     Dosage: 10 MCG, Q1H
     Route: 062
  2. CYMBALTA [Interacting]
     Indication: PRODUCT USED FOR UNKNOWN INDICATION
     Dosage: 2 TABLET, DAILY
  3. CYMBALTA [Interacting]
     Dosage: 1 TABLET, DAILY

REACTIONS (2)
  - Feeling drunk [Unknown]
  - Drug interaction [Unknown]
